FAERS Safety Report 18485782 (Version 1)
Quarter: 2020Q4

REPORT INFORMATION
  Report Type: Spontaneous
  Country: US (occurrence: US)
  Receive Date: 20201110
  Receipt Date: 20201110
  Transmission Date: 20210114
  Serious: Yes (Hospitalization)
  Sender: FDA-Public Use
  Company Number: None

PATIENT
  Age: 83 Year
  Sex: Male

DRUGS (1)
  1. WARFARIN (WARFARIN NA 5MG TAB) [Suspect]
     Active Substance: WARFARIN SODIUM
     Indication: ATRIAL FIBRILLATION
     Dosage: ?          OTHER DOSE:MG;?
     Route: 048
     Dates: start: 19960216

REACTIONS (3)
  - Gastric haemorrhage [None]
  - Haemoglobin decreased [None]
  - International normalised ratio increased [None]

NARRATIVE: CASE EVENT DATE: 20201017
